FAERS Safety Report 6758112-3 (Version None)
Quarter: 2010Q2

REPORT INFORMATION
  Report Type: 
  Country: None (occurrence: None)
  Receive Date: 20100607
  Receipt Date: 20100601
  Transmission Date: 20101027
  Serious: Yes (Hospitalization)
  Sender: FDA-Public Use
  Company Number: ES-B.I. PHARMACEUTICALS,INC./RIDGEFIELD-2010-ES-00121ES

PATIENT
  Age: 73 Year
  Sex: Male

DRUGS (5)
  1. MICARDIS HCT [Suspect]
     Indication: THROMBOSIS PROPHYLAXIS
     Dosage: 40 MG TELMISARTAN / 12,5 MG HIDROCLOROTIAZIDA
     Route: 048
     Dates: start: 20081024, end: 20081106
  2. NORVASC [Suspect]
     Indication: TYPE 2 DIABETES MELLITUS
     Dosage: 20 MG
     Route: 048
     Dates: start: 20070101
  3. SEGURIL [Suspect]
     Indication: HYPERTENSION
     Dosage: 40 MG
     Route: 048
     Dates: start: 20081024, end: 20081106
  4. ACETILSALICILICO ACIDO [Suspect]
     Indication: CARDIOVASCULAR EVENT PROPHYLAXIS
     Dosage: 100 MG
     Route: 048
  5. EMCONCOR [Suspect]
     Indication: ISCHAEMIC CARDIOMYOPATHY
     Dosage: 5 MG
     Route: 048
     Dates: start: 20060101

REACTIONS (4)
  - DRUG INTERACTION [None]
  - HYPERKALAEMIA [None]
  - NODAL RHYTHM [None]
  - RENAL FAILURE ACUTE [None]
